FAERS Safety Report 16689035 (Version 1)
Quarter: 2019Q3

REPORT INFORMATION
  Report Type: Spontaneous
  Country: ES (occurrence: ES)
  Receive Date: 20190809
  Receipt Date: 20190809
  Transmission Date: 20191004
  Serious: Yes (Hospitalization, Other)
  Sender: FDA-Public Use
  Company Number: ES-PFIZER INC-2019338715

PATIENT
  Age: 54 Year
  Sex: Male

DRUGS (12)
  1. CIPROFLOXACIN. [Suspect]
     Active Substance: CIPROFLOXACIN
     Indication: ANTIBIOTIC PROPHYLAXIS
     Dosage: 400 MG, SINGLE
     Route: 042
     Dates: start: 20180727, end: 20180727
  2. CIPROFLOXACIN. [Suspect]
     Active Substance: CIPROFLOXACIN
     Dosage: 400 MG, SINGLE
     Route: 042
     Dates: start: 20180802, end: 20180802
  3. INDOMETACIN [Suspect]
     Active Substance: INDOMETHACIN
     Dosage: 100 MG, SINGLE
     Route: 054
     Dates: start: 20180802, end: 20180802
  4. PROPOFOL. [Suspect]
     Active Substance: PROPOFOL
     Dosage: UNK
     Route: 041
     Dates: start: 20180810, end: 20180810
  5. INDOMETACIN [Suspect]
     Active Substance: INDOMETHACIN
     Dosage: 100 MG, SINGLE
     Route: 054
     Dates: start: 20180810, end: 20180810
  6. PROPOFOL. [Suspect]
     Active Substance: PROPOFOL
     Indication: ENDOSCOPIC RETROGRADE CHOLANGIOPANCREATOGRAPHY
     Dosage: UNK
     Route: 041
     Dates: start: 20180727, end: 20180727
  7. PROPOFOL. [Suspect]
     Active Substance: PROPOFOL
     Dosage: UNK
     Route: 041
     Dates: start: 20180802, end: 20180802
  8. CIPROFLOXACIN. [Suspect]
     Active Substance: CIPROFLOXACIN
     Dosage: 400 MG, SINGLE
     Route: 042
     Dates: start: 20180810, end: 20180810
  9. REMIFENTANIL [Suspect]
     Active Substance: REMIFENTANIL
     Indication: ENDOSCOPIC RETROGRADE CHOLANGIOPANCREATOGRAPHY
     Dosage: UNK
     Route: 042
     Dates: start: 20180727, end: 20180727
  10. REMIFENTANIL [Suspect]
     Active Substance: REMIFENTANIL
     Dosage: UNK
     Route: 042
     Dates: start: 20180802, end: 20180802
  11. REMIFENTANIL [Suspect]
     Active Substance: REMIFENTANIL
     Dosage: UNK
     Route: 042
     Dates: start: 20180810, end: 20180810
  12. INDOMETACIN [Suspect]
     Active Substance: INDOMETHACIN
     Indication: ENDOSCOPIC RETROGRADE CHOLANGIOPANCREATOGRAPHY
     Dosage: 100 MG, SINGLE
     Route: 054
     Dates: start: 20180727, end: 20180727

REACTIONS (1)
  - Hyperbilirubinaemia [Recovered/Resolved]

NARRATIVE: CASE EVENT DATE: 20180730
